FAERS Safety Report 19993975 (Version 6)
Quarter: 2022Q2

REPORT INFORMATION
  Report Type: Report from Study
  Country: US (occurrence: US)
  Receive Date: 20211025
  Receipt Date: 20220404
  Transmission Date: 20220721
  Serious: Yes (Hospitalization, Other)
  Sender: FDA-Public Use
  Company Number: US-NOVARTISPH-NVSC2021US243480

PATIENT
  Sex: Male

DRUGS (3)
  1. ENTRESTO [Suspect]
     Active Substance: SACUBITRIL\VALSARTAN
     Indication: Product used for unknown indication
     Dosage: UNK
     Route: 048
     Dates: start: 20211015
  2. ENTRESTO [Suspect]
     Active Substance: SACUBITRIL\VALSARTAN
     Dosage: 1 DOSAGE FORM, BID
     Route: 065
  3. FARXIGA [Suspect]
     Active Substance: DAPAGLIFLOZIN PROPANEDIOL
     Indication: Product used for unknown indication
     Dosage: UNK
     Route: 065

REACTIONS (10)
  - Staphylococcal infection [Recovering/Resolving]
  - Fluid retention [Unknown]
  - Vertigo [Recovering/Resolving]
  - Nausea [Recovering/Resolving]
  - Ejection fraction decreased [Unknown]
  - Hypertension [Unknown]
  - Weight increased [Unknown]
  - Renal disorder [Unknown]
  - Blood potassium decreased [Unknown]
  - Cough [Unknown]
